FAERS Safety Report 7134516-4 (Version None)
Quarter: 2010Q4

REPORT INFORMATION
  Report Type: 
  Country: None (occurrence: None)
  Receive Date: 20101130
  Receipt Date: 20101130
  Transmission Date: 20110411
  Serious: Yes (Death, Life-Threatening, Disabling, Congenital Anomaly, Other)
  Sender: FDA-Public Use
  Company Number: None

PATIENT
  Age: 34 Year
  Sex: Female
  Weight: 53.5244 kg

DRUGS (2)
  1. EFFEXOR XR [Suspect]
     Indication: DEPRESSION
     Dosage: 37.5 1 PO
     Route: 048
     Dates: start: 20070801, end: 20101107
  2. EFFEXOR XR [Suspect]
     Indication: PANIC DISORDER
     Dosage: 37.5 1 PO
     Route: 048
     Dates: start: 20070801, end: 20101107

REACTIONS (28)
  - ABNORMAL BEHAVIOUR [None]
  - AGITATION [None]
  - ANGER [None]
  - APHASIA [None]
  - CHILLS [None]
  - CRYING [None]
  - DEATH NEONATAL [None]
  - DEHYDRATION [None]
  - DEPRESSION [None]
  - DIARRHOEA [None]
  - DISTURBANCE IN ATTENTION [None]
  - DIZZINESS [None]
  - DRUG EXPOSURE DURING PREGNANCY [None]
  - DRUG WITHDRAWAL SYNDROME [None]
  - FOETAL DISORDER [None]
  - HOT FLUSH [None]
  - HYPERHIDROSIS [None]
  - HYPOPHAGIA [None]
  - INDUCED LABOUR [None]
  - MUSCLE SPASMS [None]
  - MUSCULAR WEAKNESS [None]
  - NIGHTMARE [None]
  - PARAESTHESIA [None]
  - PARANOIA [None]
  - PREGNANCY [None]
  - THINKING ABNORMAL [None]
  - VISION BLURRED [None]
  - VOMITING [None]
